FAERS Safety Report 8517711-9 (Version None)
Quarter: 2012Q3

REPORT INFORMATION
  Report Type: 
  Country: None (occurrence: None)
  Receive Date: 20120718
  Receipt Date: 20120711
  Transmission Date: 20120928
  Serious: Yes (Hospitalization)
  Sender: FDA-Public Use
  Company Number: US-CELGENEUS-163-21880-12071380

PATIENT
  Sex: Male

DRUGS (5)
  1. LAXATIVE [Concomitant]
     Route: 065
  2. DEXAMETHASONE [Concomitant]
     Route: 065
  3. REVLIMID [Suspect]
     Dosage: 15 MILLIGRAM
     Route: 048
     Dates: start: 20120613
  4. BISACODYL [Concomitant]
     Route: 065
  5. PANTOPRAZOLE SODIUM [Concomitant]
     Route: 065

REACTIONS (2)
  - DYSSTASIA [None]
  - DIZZINESS [None]
